FAERS Safety Report 22014808 (Version 2)
Quarter: 2023Q1

REPORT INFORMATION
  Report Type: Spontaneous
  Country: US (occurrence: US)
  Receive Date: 20230221
  Receipt Date: 20230324
  Transmission Date: 20230418
  Serious: No
  Sender: FDA-Public Use
  Company Number: US-BRISTOL-MYERS SQUIBB COMPANY-2023-025248

PATIENT
  Age: 74 Year
  Sex: Female
  Weight: 90.26 kg

DRUGS (1)
  1. REVLIMID [Suspect]
     Active Substance: LENALIDOMIDE
     Indication: Plasma cell myeloma
     Dosage: DAILY FOR 21DAYS
     Route: 048
     Dates: start: 20211201

REACTIONS (3)
  - Constipation [Unknown]
  - Breast pain [Unknown]
  - Arthralgia [Not Recovered/Not Resolved]
